FAERS Safety Report 5674335-9 (Version None)
Quarter: 2008Q2

REPORT INFORMATION
  Report Type: 
  Country: None (occurrence: None)
  Receive Date: 20080229
  Receipt Date: 20071217
  Transmission Date: 20081010
  Serious: Yes (Other)
  Sender: FDA-Public Use
  Company Number: 253058

PATIENT
  Age: 15 Year
  Sex: Male

DRUGS (1)
  1. NUTROPIN AQ [Suspect]
     Indication: DRUG USE FOR UNKNOWN INDICATION

REACTIONS (1)
  - EPIPHYSIOLYSIS [None]
